FAERS Safety Report 16202498 (Version 11)
Quarter: 2019Q3

REPORT INFORMATION
  Report Type: Spontaneous
  Country: US (occurrence: US)
  Receive Date: 20190416
  Receipt Date: 20190925
  Transmission Date: 20191004
  Serious: No
  Sender: FDA-Public Use
  Company Number: US-PFIZER INC-2019162083

PATIENT
  Age: 68 Year
  Sex: Male
  Weight: 87 kg

DRUGS (11)
  1. DOXYCYCLINE. [Concomitant]
     Active Substance: DOXYCYCLINE
     Indication: LOCALISED INFECTION
     Dosage: UNK
  2. ROBAXIN [Concomitant]
     Active Substance: METHOCARBAMOL
     Dosage: 2 DF, 3X/DAY, (TAKE 2 TABS BY MOUTH EVERY 8 HOURS)
     Route: 048
     Dates: start: 20190821
  3. LYRICA [Suspect]
     Active Substance: PREGABALIN
     Indication: NEURALGIA
     Dosage: 75 MG, 4X/DAY (EVERY 6 HOURS)
  4. LYRICA [Suspect]
     Active Substance: PREGABALIN
     Dosage: 150 MG, 2X/DAY
     Dates: start: 201905, end: 2019
  5. LYRICA [Suspect]
     Active Substance: PREGABALIN
     Dosage: 150 MG, 3X/DAY (TAKE 1 CAP BY MOUTH 3 TIMES DAILY FOR 360 DAYS)
     Route: 048
     Dates: start: 20190917, end: 201909
  6. OXYCODONE [Concomitant]
     Active Substance: OXYCODONE
     Indication: SPINAL OSTEOARTHRITIS
     Dosage: 10 MG, AS NEEDED (4 TO 5 TIMES A DAY)
  7. LYRICA [Suspect]
     Active Substance: PREGABALIN
     Dosage: 150 MG, 2X/DAY
     Dates: start: 2019, end: 2019
  8. ZANAFLEX [Concomitant]
     Active Substance: TIZANIDINE HYDROCHLORIDE
     Dosage: 2 MG, 3X/DAY
  9. LYRICA [Suspect]
     Active Substance: PREGABALIN
     Indication: DIABETIC NEUROPATHY
     Dosage: 300 MG, 2X/DAY
     Dates: end: 20190523
  10. LYRICA [Suspect]
     Active Substance: PREGABALIN
     Dosage: 150 MG, 3X/DAY (TAKE 1 CAP BY MOUTH 3 TIMES DAILY FOR 360 DAYS)
     Route: 048
     Dates: start: 20190311, end: 20190907
  11. OXYCODONE [Concomitant]
     Active Substance: OXYCODONE
     Dosage: 10 MG, UNK (5 TIMES A DAY)

REACTIONS (6)
  - Skin ulcer [Unknown]
  - Asthenia [Unknown]
  - Nervousness [Unknown]
  - Visual impairment [Unknown]
  - Gait disturbance [Unknown]
  - Therapeutic product effect incomplete [Unknown]
